FAERS Safety Report 22323743 (Version 1)
Quarter: 2023Q2

REPORT INFORMATION
  Report Type: Spontaneous
  Country: US (occurrence: None)
  Receive Date: 20230512
  Receipt Date: 20230512
  Transmission Date: 20230722
  Serious: Yes (Other)
  Sender: FDA-Public Use
  Company Number: None

PATIENT
  Age: 13 Year
  Sex: Male
  Weight: 33.57 kg

DRUGS (9)
  1. FLUTICASONE PROPIONATE [Suspect]
     Active Substance: FLUTICASONE PROPIONATE
     Indication: Sleep apnoea syndrome
     Dosage: OTHER STRENGTH : 16 G;?OTHER QUANTITY : 2 SPRAY(S);?FREQUENCY : AT BEDTIME;?
     Route: 055
     Dates: end: 20230509
  2. QUILLIVANT XR [Concomitant]
     Active Substance: METHYLPHENIDATE HYDROCHLORIDE
  3. CLONIDINE [Concomitant]
     Active Substance: CLONIDINE
  4. GUANFACINE [Concomitant]
     Active Substance: GUANFACINE
  5. CLARITIN [Concomitant]
     Active Substance: LORATADINE
  6. enemas supplies [Concomitant]
  7. BUDESONIDE [Concomitant]
     Active Substance: BUDESONIDE
  8. VITAMIN D NOS [Concomitant]
     Active Substance: VITAMIN D NOS
  9. COD LIVER OIL [Concomitant]
     Active Substance: COD LIVER OIL

REACTIONS (2)
  - Eye swelling [None]
  - Sinus operation [None]

NARRATIVE: CASE EVENT DATE: 20030516
